FAERS Safety Report 24339230 (Version 3)
Quarter: 2025Q2

REPORT INFORMATION
  Report Type: Report from Study
  Country: DE (occurrence: DE)
  Receive Date: 20240919
  Receipt Date: 20250403
  Transmission Date: 20250716
  Serious: No
  Sender: PFIZER
  Company Number: DE-PFM-2024-04964

PATIENT
  Age: 84 Year
  Sex: Female

DRUGS (13)
  1. ENCORAFENIB [Suspect]
     Active Substance: ENCORAFENIB
     Indication: Malignant melanoma
     Dosage: 450 MG, QD (1/DAY)
     Route: 048
     Dates: start: 20210521, end: 20220603
  2. ENCORAFENIB [Suspect]
     Active Substance: ENCORAFENIB
     Dosage: 225 MG, QD (1/DAY)
     Route: 048
     Dates: start: 20220612
  3. ENCORAFENIB [Suspect]
     Active Substance: ENCORAFENIB
     Dosage: 450 MG, QD (1/DAY)
     Route: 048
     Dates: start: 20220701
  4. ENCORAFENIB [Suspect]
     Active Substance: ENCORAFENIB
     Dosage: 175 MG, QD (1/DAY)
     Route: 048
     Dates: start: 20220714
  5. BINIMETINIB [Suspect]
     Active Substance: BINIMETINIB
     Indication: Malignant melanoma
     Dosage: 45 MG, BID (2/DAY)
     Route: 048
     Dates: start: 20210521, end: 20220603
  6. BINIMETINIB [Suspect]
     Active Substance: BINIMETINIB
     Dosage: 22.5 MG, BID (2/DAY)
     Route: 048
     Dates: start: 20220612
  7. BINIMETINIB [Suspect]
     Active Substance: BINIMETINIB
     Dosage: 15 MG, QD (1/DAY)
     Route: 048
     Dates: start: 20220714
  8. ATORVASTATIN [Concomitant]
     Active Substance: ATORVASTATIN
     Indication: Prophylaxis
     Route: 065
  9. ASPIRIN [Concomitant]
     Active Substance: ASPIRIN
     Indication: Prophylaxis
     Route: 065
  10. METOPROLOL [Concomitant]
     Active Substance: METOPROLOL
     Route: 065
  11. AMLODIPINE BESYLATE [Concomitant]
     Active Substance: AMLODIPINE BESYLATE
     Route: 065
  12. TORSEMIDE [Concomitant]
     Active Substance: TORSEMIDE
     Route: 065
  13. VALGANCICLOVIR [Concomitant]
     Active Substance: VALGANCICLOVIR
     Indication: Cytomegalovirus infection
     Route: 065
     Dates: start: 20220714

REACTIONS (2)
  - Off label use [Unknown]
  - Product use issue [Unknown]
